FAERS Safety Report 4409610-9 (Version None)
Quarter: 2004Q3

REPORT INFORMATION
  Report Type: 
  Country: None (occurrence: None)
  Receive Date: 20040726
  Receipt Date: 20040709
  Transmission Date: 20050211
  Serious: Yes (Hospitalization)
  Sender: FDA-Public Use
  Company Number: 2004-BP-03405NB

PATIENT
  Age: 71 Year
  Sex: Male

DRUGS (5)
  1. MICARDIS [Suspect]
     Indication: HYPERTENSION
     Dosage: 1 ANZ
     Route: 048
     Dates: start: 20031201, end: 20040120
  2. ZANTAC [Concomitant]
  3. MAGNESIUM OXIDE (MAGNESIUM OXIDE) [Concomitant]
  4. PRAVASTATIN [Concomitant]
  5. ASPENON (APRINDINE HYDROCHLORIDE) [Concomitant]

REACTIONS (1)
  - LIVER DISORDER [None]
